FAERS Safety Report 11804420 (Version 1)
Quarter: 2015Q4

REPORT INFORMATION
  Report Type: Not Available
  Country: US (occurrence: US)
  Receive Date: 20151204
  Receipt Date: 20151204
  Transmission Date: 20160305
  Serious: Yes (Hospitalization)
  Sender: FDA-Public Use
  Company Number: US-ANIPHARMA-2015-US-000629

PATIENT
  Age: 22 Year
  Sex: Male

DRUGS (1)
  1. SULINDAC (NON-SPECIFIC) [Suspect]
     Active Substance: SULINDAC
     Dosage: 15 GRAMS
     Route: 048

REACTIONS (6)
  - Suicide attempt [None]
  - Overdose [Recovered/Resolved]
  - Intentional overdose [None]
  - Acute kidney injury [Recovering/Resolving]
  - Hyperbilirubinaemia [Recovered/Resolved]
  - Dry gangrene [Recovering/Resolving]
